FAERS Safety Report 18473900 (Version 1)
Quarter: 2020Q4

REPORT INFORMATION
  Report Type: Spontaneous
  Country: US (occurrence: US)
  Receive Date: 20201106
  Receipt Date: 20201106
  Transmission Date: 20210114
  Serious: Yes (Life-Threatening, Hospitalization, Other)
  Sender: FDA-Public Use
  Company Number: US-MSNLABS-2020MSNLIT00397

PATIENT
  Age: 61 Year
  Sex: Male

DRUGS (3)
  1. LEVETIRACETAM. [Interacting]
     Active Substance: LEVETIRACETAM
     Indication: POSTERIOR REVERSIBLE ENCEPHALOPATHY SYNDROME
     Route: 065
  2. PACLITAXEL INJECTION 300 MG/50 ML [Suspect]
     Active Substance: PACLITAXEL
     Indication: SQUAMOUS CELL CARCINOMA OF LUNG
     Dosage: UNKNOWN
     Route: 065
  3. CARBOPLATIN. [Suspect]
     Active Substance: CARBOPLATIN
     Indication: SQUAMOUS CELL CARCINOMA OF LUNG
     Dosage: UNKNOWN
     Route: 065

REACTIONS (1)
  - Posterior reversible encephalopathy syndrome [Recovered/Resolved]
